FAERS Safety Report 14471394 (Version 1)
Quarter: 2018Q1

REPORT INFORMATION
  Report Type: Spontaneous
  Country: CA (occurrence: CA)
  Receive Date: 20180131
  Receipt Date: 20180131
  Transmission Date: 20180509
  Serious: Yes (Other)
  Sender: FDA-Public Use
  Company Number: CA-TEVA-2018-CA-854336

PATIENT
  Sex: Female

DRUGS (8)
  1. PREDNISONE. [Concomitant]
     Active Substance: PREDNISONE
     Route: 065
  2. BISOPROLOL [Concomitant]
     Active Substance: BISOPROLOL
     Route: 065
  3. DEXILANT [Concomitant]
     Active Substance: DEXLANSOPRAZOLE
     Route: 065
  4. ACTONEL [Suspect]
     Active Substance: RISEDRONATE SODIUM
     Indication: PRODUCT USED FOR UNKNOWN INDICATION
     Route: 065
  5. ACTEMRA [Suspect]
     Active Substance: TOCILIZUMAB
     Dosage: 6.6667 MILLIGRAM DAILY; 200 MG, EVERY MONTH
     Route: 042
  6. ALENDRONATE [Concomitant]
     Active Substance: ALENDRONATE SODIUM
     Route: 065
  7. HYDROXYCHLOROQUINE [Concomitant]
     Active Substance: HYDROXYCHLOROQUINE
     Route: 065
  8. TOLOXIN [Concomitant]
     Active Substance: DIGOXIN
     Route: 065

REACTIONS (26)
  - Bladder disorder [Unknown]
  - Dry throat [Unknown]
  - Dysphonia [Unknown]
  - Liver disorder [Unknown]
  - Urinary incontinence [Unknown]
  - Asthenia [Unknown]
  - Inflammation [Unknown]
  - Diarrhoea [Unknown]
  - Ill-defined disorder [Unknown]
  - Weight increased [Unknown]
  - Vomiting [Unknown]
  - Nausea [Unknown]
  - Urinary tract disorder [Unknown]
  - White blood cell count increased [Unknown]
  - Arthralgia [Unknown]
  - Peripheral swelling [Unknown]
  - Pain in extremity [Unknown]
  - Drug ineffective [Unknown]
  - Blood pressure diastolic decreased [Unknown]
  - Nocturia [Unknown]
  - Rhinorrhoea [Unknown]
  - Skin cancer [Unknown]
  - Pain [Unknown]
  - Arthropathy [Unknown]
  - Chromaturia [Unknown]
  - Nasopharyngitis [Unknown]
